FAERS Safety Report 5156053-9 (Version None)
Quarter: 2006Q4

REPORT INFORMATION
  Report Type: 
  Country: None (occurrence: None)
  Receive Date: 20061114
  Receipt Date: 20061027
  Transmission Date: 20070319
  Serious: Yes (Hospitalization, Other)
  Sender: FDA-Public Use
  Company Number: CERZ-11358

PATIENT
  Age: 63 Year
  Sex: Female
  Weight: 49.8957 kg

DRUGS (1)
  1. CEREZYME [Suspect]
     Indication: GAUCHER'S DISEASE
     Dosage: 1600 UNITS Q2WKS IV
     Route: 042
     Dates: start: 19970601

REACTIONS (5)
  - CARDIAC FAILURE CONGESTIVE [None]
  - FALL [None]
  - HYPOTENSION [None]
  - OSTEOARTHRITIS [None]
  - OSTEOPOROSIS [None]
